FAERS Safety Report 11301827 (Version 1)
Quarter: 2015Q3

REPORT INFORMATION
  Report Type: Spontaneous
  Country: GB (occurrence: None)
  Receive Date: 20150722
  Receipt Date: 20150722
  Transmission Date: 20151125
  Serious: Yes (Hospitalization)
  Sender: FDA-Public Use
  Company Number: COR_00329_2015

PATIENT
  Age: 42 Year
  Sex: Male

DRUGS (5)
  1. CICLOSPORIN (CICLOSPORIN) [Suspect]
     Active Substance: CYCLOSPORINE
     Indication: HISTIOCYTOSIS HAEMATOPHAGIC
     Dosage: DF 25% DOSE REDUCTION
     Dates: start: 20130805, end: 2013
  2. DEXAMETHASONE (DEXAMETHASONE) [Suspect]
     Active Substance: DEXAMETHASONE
     Indication: HISTIOCYTOSIS HAEMATOPHAGIC
     Dates: start: 20130805, end: 2013
  3. ETOPOSIDE (ETOPOSIDE) [Suspect]
     Active Substance: ETOPOSIDE
     Indication: HISTIOCYTOSIS HAEMATOPHAGIC
     Dates: start: 20130805, end: 201308
  4. ALEMTUZUMAB [Concomitant]
     Active Substance: ALEMTUZUMAB
  5. IMMUNOGLOBULINS [Concomitant]
     Active Substance: HUMAN IMMUNOGLOBULIN G

REACTIONS (7)
  - Splenomegaly [None]
  - Hepatorenal failure [None]
  - Histiocytosis haematophagic [None]
  - Cytomegalovirus infection [None]
  - Normochromic normocytic anaemia [None]
  - Pancytopenia [None]
  - Disease recurrence [None]

NARRATIVE: CASE EVENT DATE: 2013
